FAERS Safety Report 7617013-9 (Version None)
Quarter: 2011Q3

REPORT INFORMATION
  Report Type: 
  Country: None (occurrence: None)
  Receive Date: 20110718
  Receipt Date: 20110704
  Transmission Date: 20111222
  Serious: Yes (Hospitalization, Other)
  Sender: FDA-Public Use
  Company Number: FR-BRISTOL-MYERS SQUIBB COMPANY-15905151

PATIENT
  Age: 69 Year
  Sex: Male

DRUGS (1)
  1. SPRYCEL [Suspect]
     Route: 048
     Dates: start: 20090401, end: 20110501

REACTIONS (8)
  - HEPATOMEGALY [None]
  - PLEURISY [None]
  - ESCHERICHIA INFECTION [None]
  - DIARRHOEA [None]
  - LIVER FUNCTION TEST ABNORMAL [None]
  - RENAL FAILURE [None]
  - PLEURAL EFFUSION [None]
  - BRONCHITIS [None]
